FAERS Safety Report 18672589 (Version 1)
Quarter: 2020Q4

REPORT INFORMATION
  Report Type: Spontaneous
  Country: EG (occurrence: EG)
  Receive Date: 20201229
  Receipt Date: 20201229
  Transmission Date: 20210114
  Serious: Yes (Other)
  Sender: FDA-Public Use
  Company Number: EG-HIKMA PHARMACEUTICALS USA INC.-EG-H14001-20-05746

PATIENT
  Age: 43 Year
  Sex: Female

DRUGS (2)
  1. DOCETAX [Suspect]
     Active Substance: DOCETAXEL
     Indication: OVARIAN CANCER
     Dosage: 150MG/21 DAYS
     Route: 041
  2. CARBOTINOL [Suspect]
     Active Substance: CARBOPLATIN
     Indication: OVARIAN CANCER
     Dosage: 500 MG/21 DAYS
     Route: 041

REACTIONS (6)
  - Hyperhidrosis [Unknown]
  - Cough [Unknown]
  - Dyspnoea [Unknown]
  - Paraesthesia [Unknown]
  - Flushing [Unknown]
  - Chills [Unknown]
